FAERS Safety Report 7296313-9 (Version None)
Quarter: 2011Q1

REPORT INFORMATION
  Report Type: 
  Country: None (occurrence: None)
  Receive Date: 20110204
  Receipt Date: 20110121
  Transmission Date: 20110831
  Serious: Yes (Life-Threatening)
  Sender: FDA-Public Use
  Company Number: 814755

PATIENT
  Age: 62 Year
  Sex: Female
  Weight: 68.2 kg

DRUGS (8)
  1. RANITIDINE [Concomitant]
  2. ONDANSETRON [Concomitant]
  3. CARBOPLATIN [Suspect]
     Indication: NEOPLASM MALIGNANT
     Dosage: (255 MG MILLIGRAM(S), INTRAVENOUS) (255 MG MILLIGRAM(S), INTRAVENOUS)
     Route: 042
     Dates: start: 20101231, end: 20101231
  4. CARBOPLATIN [Suspect]
     Indication: OVARIAN CANCER
     Dosage: (255 MG MILLIGRAM(S), INTRAVENOUS) (255 MG MILLIGRAM(S), INTRAVENOUS)
     Route: 042
     Dates: start: 20101231, end: 20101231
  5. CARBOPLATIN [Suspect]
     Indication: NEOPLASM MALIGNANT
     Dosage: (255 MG MILLIGRAM(S), INTRAVENOUS) (255 MG MILLIGRAM(S), INTRAVENOUS)
     Route: 042
     Dates: start: 20101231, end: 20101231
  6. CARBOPLATIN [Suspect]
     Indication: OVARIAN CANCER
     Dosage: (255 MG MILLIGRAM(S), INTRAVENOUS) (255 MG MILLIGRAM(S), INTRAVENOUS)
     Route: 042
     Dates: start: 20101231, end: 20101231
  7. PIRITON [Concomitant]
  8. HYDROCORTISONE [Concomitant]

REACTIONS (4)
  - DIZZINESS [None]
  - PARAESTHESIA [None]
  - NAUSEA [None]
  - CHEST DISCOMFORT [None]
